FAERS Safety Report 14890098 (Version 2)
Quarter: 2018Q4

REPORT INFORMATION
  Report Type: Spontaneous
  Country: DE (occurrence: DE)
  Receive Date: 20180514
  Receipt Date: 20181102
  Transmission Date: 20190204
  Serious: Yes (Other)
  Sender: FDA-Public Use
  Company Number: DE-IPSEN BIOPHARMACEUTICALS, INC.-2018-06607

PATIENT
  Sex: Male
  Weight: 4.02 kg

DRUGS (4)
  1. MECASERMIN [Suspect]
     Active Substance: MECASERMIN
     Indication: INSULIN RESISTANCE SYNDROME
  2. MECASERMIN [Suspect]
     Active Substance: MECASERMIN
     Route: 058
  3. MECASERMIN [Suspect]
     Active Substance: MECASERMIN
  4. MECASERMIN [Suspect]
     Active Substance: MECASERMIN
     Indication: OFF LABEL USE
     Dosage: 0.5 MG/KG BODY WEIGHT PER DAY

REACTIONS (5)
  - Adenoidal hypertrophy [Recovered/Resolved]
  - Hypoglycaemia [Recovering/Resolving]
  - Product supply issue [Unknown]
  - Off label use [Unknown]
  - Condition aggravated [Recovering/Resolving]
